FAERS Safety Report 14627970 (Version 1)
Quarter: 2018Q1

REPORT INFORMATION
  Report Type: Spontaneous
  Country: US (occurrence: US)
  Receive Date: 20180312
  Receipt Date: 20180312
  Transmission Date: 20180509
  Serious: No
  Sender: FDA-Public Use
  Company Number: US-ACTELION-A-NJ2018-166107

PATIENT
  Age: 62 Year
  Sex: Female

DRUGS (3)
  1. REMODULIN [Suspect]
     Active Substance: TREPROSTINIL
     Indication: PULMONARY ARTERIAL HYPERTENSION
     Dosage: 10 NG/KG, PER MIN
     Route: 042
     Dates: end: 20180112
  2. REMODULIN [Suspect]
     Active Substance: TREPROSTINIL
     Dosage: 20 NG/KG, PER MIN
     Route: 042
     Dates: start: 20170328
  3. UPTRAVI [Suspect]
     Active Substance: SELEXIPAG
     Indication: PULMONARY ARTERIAL HYPERTENSION
     Dosage: 1400 MCG, BID
     Route: 048
     Dates: start: 20171117

REACTIONS (10)
  - Vomiting [Not Recovered/Not Resolved]
  - Diarrhoea [Unknown]
  - Dizziness postural [Not Recovered/Not Resolved]
  - Headache [Unknown]
  - Nausea [Not Recovered/Not Resolved]
  - Dizziness [Unknown]
  - Ocular hypertension [Unknown]
  - Myalgia [Not Recovered/Not Resolved]
  - Skin lesion [Unknown]
  - Pain in jaw [Unknown]

NARRATIVE: CASE EVENT DATE: 2017
